FAERS Safety Report 6078333-5 (Version None)
Quarter: 2009Q1

REPORT INFORMATION
  Report Type: 
  Country: None (occurrence: None)
  Receive Date: 20090213
  Receipt Date: 20090203
  Transmission Date: 20090719
  Serious: Yes (Hospitalization)
  Sender: FDA-Public Use
  Company Number: JP-JNJFOC-20090101824

PATIENT
  Sex: Female
  Weight: 49 kg

DRUGS (16)
  1. REMICADE [Suspect]
     Route: 042
  2. REMICADE [Suspect]
     Route: 042
  3. REMICADE [Suspect]
     Route: 042
  4. REMICADE [Suspect]
     Route: 042
  5. REMICADE [Suspect]
     Route: 042
  6. REMICADE [Suspect]
     Route: 042
  7. REMICADE [Suspect]
     Indication: CROHN'S DISEASE
     Dosage: 7 INFUSIONS ON UNKNOWN DATES
     Route: 042
  8. IMURAN [Concomitant]
     Indication: CROHN'S DISEASE
     Route: 048
  9. ENSURE LIQUID [Concomitant]
     Indication: CROHN'S DISEASE
     Route: 048
  10. SODIUM ALGINATE [Concomitant]
     Indication: FEMALE GENITAL TRACT FISTULA
     Route: 054
  11. THEO-DUR [Concomitant]
     Indication: ASTHMA
     Route: 048
  12. DAI-KENCHU-TO [Concomitant]
     Indication: CROHN'S DISEASE
     Route: 048
  13. LOXONIN [Concomitant]
     Indication: PAIN
     Route: 048
  14. MUCOSTA [Concomitant]
     Indication: PAIN
     Route: 048
  15. AMOBAN [Concomitant]
     Indication: INSOMNIA
     Route: 048
  16. EBASTINE [Concomitant]
     Indication: ASTHMA

REACTIONS (1)
  - ANAL CANCER [None]
